FAERS Safety Report 6141266-X (Version None)
Quarter: 2009Q2

REPORT INFORMATION
  Report Type: 
  Country: None (occurrence: None)
  Receive Date: 20090402
  Receipt Date: 20090325
  Transmission Date: 20091009
  Serious: Yes (Other)
  Sender: FDA-Public Use
  Company Number: DE-AMGEN-UK340008

PATIENT
  Sex: Female
  Weight: 56 kg

DRUGS (1)
  1. VECTIBIX [Suspect]
     Indication: DRUG USE FOR UNKNOWN INDICATION
     Route: 065
     Dates: start: 20090127, end: 20090325

REACTIONS (4)
  - CHAPPED LIPS [None]
  - LIP DRY [None]
  - RASH [None]
  - SKIN FISSURES [None]
